FAERS Safety Report 21992469 (Version 1)
Quarter: 2023Q1

REPORT INFORMATION
  Report Type: Report from Study
  Country: US (occurrence: US)
  Receive Date: 20230215
  Receipt Date: 20230215
  Transmission Date: 20230417
  Serious: Yes (Death, Other)
  Sender: FDA-Public Use
  Company Number: US-SUN PHARMACEUTICAL INDUSTRIES LTD-2023R1-378177

PATIENT
  Age: 25 Year
  Sex: Male

DRUGS (1)
  1. ACETAMINOPHEN [Suspect]
     Active Substance: ACETAMINOPHEN
     Indication: Product used for unknown indication
     Dosage: UNK
     Route: 065

REACTIONS (8)
  - Toxicity to various agents [Fatal]
  - Hypotension [Fatal]
  - Respiratory depression [Fatal]
  - Depressed level of consciousness [Fatal]
  - Osmolar gap [Fatal]
  - Hepatotoxicity [Fatal]
  - Coagulopathy [Fatal]
  - Acute kidney injury [Fatal]
